FAERS Safety Report 13911443 (Version 4)
Quarter: 2017Q3

REPORT INFORMATION
  Report Type: Report from Study
  Country: US (occurrence: US)
  Receive Date: 20170828
  Receipt Date: 20170919
  Transmission Date: 20171127
  Serious: Yes (Other)
  Sender: FDA-Public Use
  Company Number: PHEH2017US026786

PATIENT
  Age: 89 Year
  Sex: Female

DRUGS (1)
  1. TRAVATAN Z [Suspect]
     Active Substance: TRAVOPROST
     Indication: GLAUCOMA
     Dosage: QHS (OU)
     Route: 047
     Dates: start: 20100428, end: 20170125

REACTIONS (6)
  - Visual acuity reduced [Unknown]
  - Condition aggravated [Recovering/Resolving]
  - Drug ineffective [Unknown]
  - Concomitant disease aggravated [Recovering/Resolving]
  - Intraocular pressure increased [Recovering/Resolving]
  - Macular oedema [Recovering/Resolving]

NARRATIVE: CASE EVENT DATE: 20170125
